FAERS Safety Report 24027571 (Version 1)
Quarter: 2024Q2

REPORT INFORMATION
  Report Type: Spontaneous
  Country: US (occurrence: US)
  Receive Date: 20240628
  Receipt Date: 20240628
  Transmission Date: 20240716
  Serious: No
  Sender: FDA-Public Use
  Company Number: US-ROCHE-3540351

PATIENT
  Age: 48 Year
  Sex: Female

DRUGS (1)
  1. COTELLIC [Suspect]
     Active Substance: COBIMETINIB
     Indication: Bone cancer
     Dosage: TAKE 3 TABLETS BY MOUTH 1 TIME A DAY FOR 21 DAYS OF 28 DAY CYCLE, DOSE: 40MGH
     Route: 048
     Dates: start: 202403

REACTIONS (16)
  - Diarrhoea [Unknown]
  - Rash [Unknown]
  - Oral pain [Unknown]
  - Haemorrhage [Unknown]
  - Contusion [Unknown]
  - Off label use [Unknown]
  - Dyspnoea [Unknown]
  - Hypersensitivity [Unknown]
  - Chest pain [Unknown]
  - Wheezing [Unknown]
  - Pollakiuria [Unknown]
  - Visual impairment [Unknown]
  - Vision blurred [Unknown]
  - Eye movement disorder [Unknown]
  - Visual impairment [Unknown]
  - Hypertension [Unknown]

NARRATIVE: CASE EVENT DATE: 20240301
